FAERS Safety Report 11046500 (Version 1)
Quarter: 2015Q2

REPORT INFORMATION
  Report Type: Spontaneous
  Country: US (occurrence: US)
  Receive Date: 20150420
  Receipt Date: 20150420
  Transmission Date: 20150821
  Serious: No
  Sender: FDA-Public Use
  Company Number: US-TEVA-547506USA

PATIENT
  Age: 65 Year
  Sex: Male

DRUGS (1)
  1. NIACIN. [Suspect]
     Active Substance: NIACIN
     Indication: HYPERLIPIDAEMIA
     Dosage: 500 MILLIGRAM DAILY;
     Route: 048
     Dates: start: 20141201

REACTIONS (3)
  - Flushing [Unknown]
  - Erythema [Unknown]
  - Urticaria [Unknown]

NARRATIVE: CASE EVENT DATE: 20150302
